FAERS Safety Report 8516963-9 (Version None)
Quarter: 2012Q3

REPORT INFORMATION
  Report Type: 
  Country: None (occurrence: None)
  Receive Date: 20120718
  Receipt Date: 20120515
  Transmission Date: 20120928
  Serious: Yes (Other)
  Sender: FDA-Public Use
  Company Number: CN-JNJFOC-20120705033

PATIENT
  Age: 50 Year
  Sex: Female

DRUGS (5)
  1. REMICADE [Suspect]
     Dosage: FOURTH DOSE
     Route: 042
     Dates: start: 20120515
  2. REMICADE [Suspect]
     Indication: PSORIATIC ARTHROPATHY
     Dosage: FIRST DOSE
     Route: 042
     Dates: start: 20120202
  3. ANTIALLERGIC DRUGS [Concomitant]
     Indication: PREMEDICATION
     Route: 065
  4. REMICADE [Suspect]
     Dosage: SECOND DOSE
     Route: 042
     Dates: start: 20120216
  5. REMICADE [Suspect]
     Route: 042
     Dates: start: 20120315

REACTIONS (4)
  - INFUSION RELATED REACTION [None]
  - SUFFOCATION FEELING [None]
  - RASH PRURITIC [None]
  - CHEST DISCOMFORT [None]
